FAERS Safety Report 7728024-7 (Version None)
Quarter: 2011Q3

REPORT INFORMATION
  Report Type: 
  Country: None (occurrence: None)
  Receive Date: 20110905
  Receipt Date: 20110826
  Transmission Date: 20111222
  Serious: No
  Sender: FDA-Public Use
  Company Number: US-BIOGENIDEC-2011BI033162

PATIENT
  Sex: Male

DRUGS (3)
  1. COPAXONE [Concomitant]
  2. TYSABRI [Suspect]
     Route: 042
     Dates: start: 20070329, end: 20091123
  3. TYSABRI [Suspect]
     Indication: MULTIPLE SCLEROSIS
     Route: 042
     Dates: start: 20110802

REACTIONS (3)
  - GAIT DISTURBANCE [None]
  - DEPRESSION [None]
  - PANIC ATTACK [None]
